FAERS Safety Report 9521498 (Version 1)
Quarter: 2013Q3

REPORT INFORMATION
  Report Type: Spontaneous
  Country: CA (occurrence: CA)
  Receive Date: 20130913
  Receipt Date: 20130913
  Transmission Date: 20140515
  Serious: Yes (Other)
  Sender: FDA-Public Use
  Company Number: CA-ASTRAZENECA-2013SE68043

PATIENT
  Sex: Female

DRUGS (6)
  1. ARIMIDEX [Suspect]
     Route: 048
  2. FASLODEX [Suspect]
     Route: 030
  3. TAMOXIFEN [Suspect]
     Route: 048
  4. XELODA [Suspect]
     Route: 065
  5. FEMARA [Suspect]
     Route: 048
  6. AROMASIN [Suspect]
     Route: 065

REACTIONS (2)
  - Malignant neoplasm progression [Unknown]
  - Breast cancer [Unknown]
